FAERS Safety Report 4876259-3 (Version None)
Quarter: 2006Q1

REPORT INFORMATION
  Report Type: 
  Country: None (occurrence: None)
  Receive Date: 20060106
  Receipt Date: 20051221
  Transmission Date: 20060701
  Serious: Yes (Hospitalization)
  Sender: FDA-Public Use
  Company Number: 8014013

PATIENT
  Age: 58 Year
  Sex: Female

DRUGS (26)
  1. METHYLPHENIDATE HCL [Suspect]
     Indication: DEPRESSION
     Dosage: 5 MG /D PO
     Route: 048
  2. METHYLPHENIDATE HCL [Suspect]
     Indication: PSYCHOMOTOR RETARDATION
     Dosage: 5 MG /D PO
     Route: 048
  3. SERTRALINE [Suspect]
     Indication: DEPRESSION
     Dosage: 25 MG /D PO
     Route: 048
  4. SERTRALINE [Suspect]
     Indication: PSYCHOMOTOR RETARDATION
     Dosage: 25 MG /D PO
     Route: 048
  5. DOPAMINE [Concomitant]
  6. TACROLIMUS [Concomitant]
  7. CYCLOPHOSPHAMIDE [Concomitant]
  8. PREDNISONE [Concomitant]
  9. VALGANCICLOVIR [Concomitant]
  10. ERTHROPOIETIN [Concomitant]
  11. PRAVASTATIN [Concomitant]
  12. ASPIRIN [Concomitant]
  13. CALCIUM CITRATE [Concomitant]
  14. PANTOPRAZOLE [Concomitant]
  15. DOCUSATE SODIUM [Concomitant]
  16. AMPHOTERICIN B NEBULIZER [Concomitant]
  17. SULFAMETHOXAZOLE + TRIMETHOPRIM [Concomitant]
  18. FUROSEMIDE [Concomitant]
  19. LEVOFLOXACIN [Concomitant]
  20. ISOPHANE INSULIN [Concomitant]
  21. VANCOMYCIN [Concomitant]
  22. NYSTATIN [Concomitant]
  23. SUBCUTANEOUS HEPARIN [Concomitant]
  24. FERROUS GLUCONATE [Concomitant]
  25. MULTI-VITAMIN [Concomitant]
  26. VERAPAMIL [Concomitant]

REACTIONS (5)
  - ATRIOVENTRICULAR BLOCK SECOND DEGREE [None]
  - CARDIAC ARREST [None]
  - HYPOTENSION [None]
  - SUPRAVENTRICULAR TACHYCARDIA [None]
  - TRANSPLANT REJECTION [None]
